FAERS Safety Report 7734691-4 (Version None)
Quarter: 2011Q3

REPORT INFORMATION
  Report Type: 
  Country: None (occurrence: None)
  Receive Date: 20110907
  Receipt Date: 20110826
  Transmission Date: 20111222
  Serious: Yes (Hospitalization, Other)
  Sender: FDA-Public Use
  Company Number: US-ELI_LILLY_AND_COMPANY-US201108008527

PATIENT
  Age: 46 Year
  Sex: Male

DRUGS (9)
  1. LANTUS [Concomitant]
  2. PROTEASE INHIBITORS [Concomitant]
  3. TRAZODONE HCL [Concomitant]
  4. BENAZEPRIL HYDROCHLORIDE [Concomitant]
  5. CYMBALTA [Suspect]
     Indication: DEPRESSION
     Dosage: UNK
     Dates: end: 20110401
  6. AMLODIPINE [Concomitant]
  7. HUMALOG [Suspect]
  8. HUMALOG [Suspect]
  9. OMEPRAZOLE [Concomitant]

REACTIONS (6)
  - RENAL FAILURE [None]
  - PAIN [None]
  - HIV TEST POSITIVE [None]
  - HEPATIC FAILURE [None]
  - RHABDOMYOLYSIS [None]
  - DRUG ABUSE [None]
